FAERS Safety Report 9180497 (Version 1)
Quarter: 2013Q1

REPORT INFORMATION
  Report Type: Spontaneous
  Country: US (occurrence: US)
  Receive Date: 20130322
  Receipt Date: 20130322
  Transmission Date: 20140127
  Serious: No
  Sender: FDA-Public Use
  Company Number: US-009507513-1303USA010867

PATIENT
  Sex: Female

DRUGS (2)
  1. SINGULAIR [Suspect]
     Dosage: 10 MG, QD
     Route: 048
     Dates: start: 20060412
  2. OCELLA [Concomitant]

REACTIONS (1)
  - Coeliac disease [Not Recovered/Not Resolved]
